FAERS Safety Report 5393885-6 (Version None)
Quarter: 2007Q3

REPORT INFORMATION
  Report Type: 
  Country: None (occurrence: None)
  Receive Date: 20070723
  Receipt Date: 20070713
  Transmission Date: 20080115
  Serious: Yes (Hospitalization)
  Sender: FDA-Public Use
  Company Number: B0479981A

PATIENT
  Age: 31 Year
  Sex: Female

DRUGS (4)
  1. LAMIVUDINE [Suspect]
     Indication: HIV INFECTION
     Route: 048
     Dates: end: 20070602
  2. VIREAD [Suspect]
     Indication: HIV INFECTION
     Route: 048
     Dates: end: 20070602
  3. STOCRIN [Suspect]
     Indication: HIV INFECTION
     Route: 048
     Dates: end: 20070602
  4. KALETRA [Concomitant]
     Indication: DRUG USE FOR UNKNOWN INDICATION
     Route: 065

REACTIONS (12)
  - BLOOD CREATININE INCREASED [None]
  - DECREASED APPETITE [None]
  - FLUID IMBALANCE [None]
  - HYPOALBUMINAEMIA [None]
  - HYPOPROTEINAEMIA [None]
  - NEPHROTIC SYNDROME [None]
  - OEDEMA [None]
  - OEDEMA PERIPHERAL [None]
  - PROTEINURIA [None]
  - RENAL DISORDER [None]
  - WEIGHT DECREASED [None]
  - WEIGHT INCREASED [None]
